FAERS Safety Report 7222821-2 (Version None)
Quarter: 2011Q1

REPORT INFORMATION
  Report Type: 
  Country: None (occurrence: None)
  Receive Date: 20110112
  Receipt Date: 20110106
  Transmission Date: 20110831
  Serious: Yes (Other)
  Sender: FDA-Public Use
  Company Number: CA-BAYER-2011-002109

PATIENT
  Sex: Female

DRUGS (1)
  1. MIRENA [Suspect]
     Dosage: 20 MCG/24HR, CONT
     Dates: start: 20080101, end: 20110110

REACTIONS (8)
  - MENTAL DISORDER [None]
  - AMNESIA [None]
  - ABNORMAL WEIGHT GAIN [None]
  - DIZZINESS [None]
  - MIGRAINE [None]
  - CONFUSIONAL STATE [None]
  - DEPRESSION [None]
  - AMENORRHOEA [None]
